FAERS Safety Report 5215653-8 (Version None)
Quarter: 2007Q1

REPORT INFORMATION
  Report Type: 
  Country: None (occurrence: None)
  Receive Date: 20070123
  Receipt Date: 20070111
  Transmission Date: 20070707
  Serious: Yes (Other)
  Sender: FDA-Public Use
  Company Number: GB-ROCHE-472995

PATIENT
  Age: 49 Year
  Sex: Female
  Weight: 107 kg

DRUGS (7)
  1. XENICAL [Suspect]
     Indication: OBESITY
     Route: 048
     Dates: start: 20060627
  2. PROZAC [Concomitant]
     Indication: DRUG USE FOR UNKNOWN INDICATION
     Dates: start: 20011002
  3. ASPIRIN [Concomitant]
     Indication: DRUG USE FOR UNKNOWN INDICATION
  4. MULTI-VITAMIN [Concomitant]
     Indication: DRUG USE FOR UNKNOWN INDICATION
  5. IRON TABLETS [Concomitant]
     Indication: DRUG USE FOR UNKNOWN INDICATION
  6. BENDROFLUMETHIAZIDE [Concomitant]
     Route: 048
     Dates: start: 20061024
  7. IRBESARTAN [Concomitant]
     Route: 048
     Dates: start: 20061213

REACTIONS (3)
  - BLOOD PRESSURE INCREASED [None]
  - PARAESTHESIA [None]
  - PROTEINURIA [None]
